FAERS Safety Report 9200436 (Version 1)
Quarter: 2013Q1

REPORT INFORMATION
  Report Type: Report from Study
  Country: US (occurrence: US)
  Receive Date: 20130329
  Receipt Date: 20130329
  Transmission Date: 20140127
  Serious: Yes (Hospitalization)
  Sender: FDA-Public Use
  Company Number: US-JNJFOC-20130315663

PATIENT
  Age: 17 Year
  Sex: Female
  Weight: 52.3 kg

DRUGS (8)
  1. REMICADE [Suspect]
     Indication: CROHN^S DISEASE
     Route: 042
     Dates: start: 20080521, end: 20080909
  2. ALBUTEROL [Concomitant]
     Route: 065
  3. CHOLECALCIFEROL [Concomitant]
     Route: 065
  4. FERROUS SULPHATE [Concomitant]
     Route: 065
  5. 5-ASA [Concomitant]
     Route: 048
  6. HUMIRA [Concomitant]
     Route: 065
     Dates: start: 201302
  7. HUMIRA [Concomitant]
     Route: 065
     Dates: start: 20081216
  8. ACETAMINOPHEN [Concomitant]
     Route: 065

REACTIONS (1)
  - Crohn^s disease [Recovered/Resolved]
